FAERS Safety Report 6039095-0 (Version None)
Quarter: 2009Q1

REPORT INFORMATION
  Report Type: 
  Country: None (occurrence: None)
  Receive Date: 20090115
  Receipt Date: 20090105
  Transmission Date: 20090719
  Serious: Yes (Other)
  Sender: FDA-Public Use
  Company Number: US-SANOFI-SYNTHELABO-A03200804717

PATIENT
  Sex: Male

DRUGS (4)
  1. AMBIEN [Suspect]
     Indication: SLEEP DISORDER
     Route: 048
     Dates: start: 20070301
  2. VICODIN ES [Concomitant]
     Indication: MUSCULOSKELETAL PAIN
     Dosage: THREE TIMES DAILY AS NEEDED
     Route: 048
     Dates: start: 20080601
  3. ZYRTEC-D 12 HOUR [Concomitant]
     Indication: RHINITIS ALLERGIC
     Dosage: TWICE DAILY AS NEEDED
     Route: 048
     Dates: start: 20080601
  4. LEXAPRO [Concomitant]
     Indication: ANXIETY
     Route: 048

REACTIONS (6)
  - ABNORMAL BEHAVIOUR [None]
  - AMNESIA [None]
  - CONFUSIONAL STATE [None]
  - DRUG ABUSE [None]
  - IMPAIRED DRIVING ABILITY [None]
  - ROAD TRAFFIC ACCIDENT [None]
